FAERS Safety Report 5576393-9 (Version None)
Quarter: 2007Q4

REPORT INFORMATION
  Report Type: 
  Country: None (occurrence: None)
  Receive Date: 20071228
  Receipt Date: 20071219
  Transmission Date: 20080405
  Serious: Yes (Other)
  Sender: FDA-Public Use
  Company Number: GB-ASTRAZENECA-2007SE06781

PATIENT
  Age: 57 Year
  Sex: Male
  Weight: 107 kg

DRUGS (4)
  1. AMIAS [Suspect]
     Indication: HYPERTENSION
     Route: 048
     Dates: start: 20070328, end: 20071217
  2. SERETIDE [Concomitant]
     Indication: ASTHMA
     Route: 048
     Dates: start: 20010201
  3. ROSUVASTATIN [Concomitant]
     Indication: LIPIDS INCREASED
     Route: 048
     Dates: start: 20031219
  4. TADALAFIL [Concomitant]
     Indication: ERECTILE DYSFUNCTION
     Route: 048
     Dates: start: 20070207

REACTIONS (1)
  - GYNAECOMASTIA [None]
